FAERS Safety Report 8257193-8 (Version None)
Quarter: 2012Q2

REPORT INFORMATION
  Report Type: 
  Country: None (occurrence: None)
  Receive Date: 20120403
  Receipt Date: 20120327
  Transmission Date: 20120825
  Serious: Yes (Other)
  Sender: FDA-Public Use
  Company Number: US-FRI-1000029374

PATIENT
  Age: 43 Year
  Sex: Male

DRUGS (3)
  1. VIIBRYD [Suspect]
     Indication: DEPRESSION
     Dosage: 10 MG
     Route: 048
     Dates: start: 20111101
  2. VIIBRYD [Suspect]
     Dosage: 20 MG
     Route: 048
  3. VIIBRYD [Suspect]
     Dosage: 40 MG
     Route: 048
     Dates: end: 20111201

REACTIONS (2)
  - SEIZURE LIKE PHENOMENA [None]
  - PARAESTHESIA [None]
